FAERS Safety Report 7464022-9 (Version None)
Quarter: 2011Q2

REPORT INFORMATION
  Report Type: 
  Country: None (occurrence: None)
  Receive Date: 20110506
  Receipt Date: 20110421
  Transmission Date: 20111010
  Serious: No
  Sender: FDA-Public Use
  Company Number: US-B.I. PHARMACEUTICALS,INC./RIDGEFIELD-2011-BP-03771BP

PATIENT
  Sex: Female

DRUGS (17)
  1. LASIX [Concomitant]
     Dosage: 40 MG
  2. ISOSORBIDE MN ER [Concomitant]
     Dosage: 60 MG
  3. AVALIDE (HCT) [Concomitant]
  4. ARIMIDEX [Concomitant]
     Dosage: 1 MG
  5. SENTRUM WITH LUTEIN [Concomitant]
  6. POTASSIUM [Concomitant]
     Dosage: 30 MEQ
  7. CALCIUM [Concomitant]
     Dosage: 1200 MG
  8. MULTAQ [Concomitant]
     Dosage: 800 MG
  9. ADVAIR DISKUS 100/50 [Concomitant]
  10. PRADAXA [Suspect]
     Indication: ATRIAL FIBRILLATION
     Dosage: 300 MG
     Route: 048
     Dates: start: 20110107
  11. LOTREL [Concomitant]
  12. TOPROL-XL [Concomitant]
     Dosage: 200 MG
  13. SYNTHROID [Concomitant]
     Dosage: 188 MCG
  14. FOSAMAX [Concomitant]
  15. PRAVACHOL [Concomitant]
     Dosage: 20 MG
  16. XOPENEX HFA [Concomitant]
  17. CATAPRES-TTS-1 [Concomitant]

REACTIONS (7)
  - FLATULENCE [None]
  - CONSTIPATION [None]
  - ABDOMINAL PAIN [None]
  - DIARRHOEA [None]
  - FATIGUE [None]
  - MALAISE [None]
  - OESOPHAGEAL PAIN [None]
